FAERS Safety Report 5395119-5 (Version None)
Quarter: 2007Q3

REPORT INFORMATION
  Report Type: 
  Country: None (occurrence: None)
  Receive Date: 20070724
  Receipt Date: 20070523
  Transmission Date: 20080115
  Serious: Yes (Other)
  Sender: FDA-Public Use
  Company Number: BE-JNJFOC-20070307323

PATIENT
  Sex: Female

DRUGS (1)
  1. PERDOFEMINA [Suspect]
     Indication: DYSMENORRHOEA
     Route: 048

REACTIONS (2)
  - COAGULOPATHY [None]
  - MENORRHAGIA [None]
